FAERS Safety Report 19290166 (Version 4)
Quarter: 2021Q3

REPORT INFORMATION
  Report Type: Spontaneous
  Country: DE (occurrence: DE)
  Receive Date: 20210522
  Receipt Date: 20210712
  Transmission Date: 20211014
  Serious: Yes (Hospitalization, Disabling, Other)
  Sender: FDA-Public Use
  Company Number: NVSC2021DE105939

PATIENT
  Age: 49 Year
  Sex: Male
  Weight: 85 kg

DRUGS (45)
  1. CYCLOPHOSPHAMIDE. [Suspect]
     Active Substance: CYCLOPHOSPHAMIDE
     Dosage: 498 MG
     Route: 065
     Dates: start: 20141216
  2. FLUDARABINE [Suspect]
     Active Substance: FLUDARABINE PHOSPHATE
     Route: 042
     Dates: start: 20150115
  3. FLUDARABINE [Suspect]
     Active Substance: FLUDARABINE PHOSPHATE
     Route: 042
     Dates: start: 20150114
  4. URSOFALK [Suspect]
     Active Substance: URSODIOL
     Indication: DRUG-INDUCED LIVER INJURY
     Dosage: UNK (FROM FEB 2016)
     Route: 065
  5. ACICLOVIR [Suspect]
     Active Substance: ACYCLOVIR
     Indication: VARICELLA ZOSTER VIRUS INFECTION
     Dosage: 400 MG
     Route: 065
     Dates: start: 201509
  6. DEKRISTOL [Concomitant]
     Active Substance: CHOLECALCIFEROL
     Indication: PRODUCT USED FOR UNKNOWN INDICATION
     Dosage: 20000 IU
     Route: 065
  7. FLUDARABINE [Suspect]
     Active Substance: FLUDARABINE PHOSPHATE
     Dosage: 25 MG/M2
     Route: 042
     Dates: start: 20141119
  8. FLUDARABINE [Suspect]
     Active Substance: FLUDARABINE PHOSPHATE
     Dosage: 25 MG/M2
     Route: 042
     Dates: start: 20141118
  9. FLUDARABINE [Suspect]
     Active Substance: FLUDARABINE PHOSPHATE
     Route: 042
     Dates: start: 20150113
  10. AMPHOTERICIN [Concomitant]
     Active Substance: AMPHOTERICIN B
     Indication: PRODUCT USED FOR UNKNOWN INDICATION
     Dosage: 1 DF
     Route: 065
  11. CYCLOPHOSPHAMID [Suspect]
     Active Substance: CYCLOPHOSPHAMIDE
     Dosage: 498 MG
     Route: 042
     Dates: start: 20141216
  12. FLUDARABINE [Suspect]
     Active Substance: FLUDARABINE PHOSPHATE
     Dosage: 25 MG/M2
     Route: 042
     Dates: start: 20150407
  13. GAZYVARO [Suspect]
     Active Substance: OBINUTUZUMAB
     Route: 042
     Dates: start: 20141216
  14. URSOFALK [Suspect]
     Active Substance: URSODIOL
     Route: 065
     Dates: start: 201602, end: 201603
  15. KEPPRA [Suspect]
     Active Substance: LEVETIRACETAM
     Indication: EPILEPSY
     Route: 065
     Dates: start: 20160727, end: 20170710
  16. DEKRISTOL [Concomitant]
     Active Substance: CHOLECALCIFEROL
     Indication: PRODUCT USED FOR UNKNOWN INDICATION
     Dosage: 20000 IU, QD
     Route: 065
  17. CALCIUMFOLINAT [Concomitant]
     Active Substance: LEUCOVORIN CALCIUM
     Indication: PRODUCT USED FOR UNKNOWN INDICATION
     Dosage: 15 MG, QD
     Route: 065
  18. CIPROFLOXACIN. [Concomitant]
     Active Substance: CIPROFLOXACIN
     Indication: PRODUCT USED FOR UNKNOWN INDICATION
     Dosage: 500 MG
     Route: 065
  19. SOLU?DECORTIN H [Concomitant]
     Indication: PRODUCT USED FOR UNKNOWN INDICATION
     Route: 065
     Dates: start: 201411
  20. CYCLOPHOSPHAMIDE. [Suspect]
     Active Substance: CYCLOPHOSPHAMIDE
     Dosage: 495 MG
     Route: 065
     Dates: start: 20141119
  21. CYCLOPHOSPHAMIDE. [Suspect]
     Active Substance: CYCLOPHOSPHAMIDE
     Dosage: 495 MG
     Route: 042
     Dates: start: 20141118
  22. GAZYVARO [Suspect]
     Active Substance: OBINUTUZUMAB
     Route: 042
     Dates: start: 20150310
  23. GAZYVARO [Suspect]
     Active Substance: OBINUTUZUMAB
     Route: 042
     Dates: start: 20141118, end: 20150407
  24. PRIVIGEN [Suspect]
     Active Substance: HUMAN IMMUNOGLOBULIN G
     Indication: CHRONIC LYMPHOCYTIC LEUKAEMIA
     Dosage: 20 G (FROM 23 MAR 2016)
     Route: 065
  25. SOLU?DECORTIN?H [Concomitant]
     Active Substance: PREDNISOLONE SODIUM SUCCINATE
     Indication: PRODUCT USED FOR UNKNOWN INDICATION
     Dosage: UNK
     Route: 065
     Dates: start: 201411
  26. CYCLOPHOSPHAMID [Suspect]
     Active Substance: CYCLOPHOSPHAMIDE
     Indication: CHRONIC LYMPHOCYTIC LEUKAEMIA
     Dosage: 495 MG
     Route: 042
     Dates: start: 20141118
  27. FLUDARABINE [Suspect]
     Active Substance: FLUDARABINE PHOSPHATE
     Indication: CHRONIC LYMPHOCYTIC LEUKAEMIA
     Dosage: UNK
     Route: 065
     Dates: start: 20141118, end: 20150407
  28. GAZYVARO [Suspect]
     Active Substance: OBINUTUZUMAB
     Indication: CHRONIC LYMPHOCYTIC LEUKAEMIA
     Dosage: UNK
     Route: 042
     Dates: start: 20141118, end: 20150407
  29. GAZYVARO [Suspect]
     Active Substance: OBINUTUZUMAB
     Route: 042
     Dates: start: 20150113
  30. GAZYVARO [Suspect]
     Active Substance: OBINUTUZUMAB
     Route: 042
     Dates: start: 201502
  31. KIOVIG [Suspect]
     Active Substance: HUMAN IMMUNOGLOBULIN G
     Route: 065
  32. CYCLOPHOSPHAMIDE. [Suspect]
     Active Substance: CYCLOPHOSPHAMIDE
     Indication: CHRONIC LYMPHOCYTIC LEUKAEMIA
     Dosage: UNK
     Route: 042
     Dates: start: 20141118, end: 20150407
  33. FLUDARABINE [Suspect]
     Active Substance: FLUDARABINE PHOSPHATE
     Dosage: 25 MG/M2
     Route: 042
     Dates: start: 20141216
  34. FLUDARABINE [Suspect]
     Active Substance: FLUDARABINE PHOSPHATE
     Dosage: 25 MG/M2
     Route: 042
     Dates: start: 201502
  35. ALLOPURINOL. [Concomitant]
     Active Substance: ALLOPURINOL
     Indication: PRODUCT USED FOR UNKNOWN INDICATION
     Dosage: 300 MG, QD
     Route: 065
  36. CYCLOPHOSPHAMID [Suspect]
     Active Substance: CYCLOPHOSPHAMIDE
     Dosage: 495 MG
     Route: 042
     Dates: start: 20141119
  37. PANTOPRAZOL [PANTOPRAZOLE] [Concomitant]
     Active Substance: PANTOPRAZOLE
     Indication: PRODUCT USED FOR UNKNOWN INDICATION
     Route: 065
  38. FLUDARABINE [Suspect]
     Active Substance: FLUDARABINE PHOSPHATE
     Route: 042
     Dates: start: 20150312
  39. FLUDARABINE [Suspect]
     Active Substance: FLUDARABINE PHOSPHATE
     Route: 042
     Dates: start: 20150310
  40. FLUDARABINE [Suspect]
     Active Substance: FLUDARABINE PHOSPHATE
     Dosage: 25 MG/M2
     Route: 042
     Dates: start: 20150313
  41. GAZYVARO [Suspect]
     Active Substance: OBINUTUZUMAB
     Indication: CHRONIC LYMPHOCYTIC LEUKAEMIA
     Route: 042
     Dates: start: 20150407
  42. PRIVIGEN [Suspect]
     Active Substance: HUMAN IMMUNOGLOBULIN G
     Indication: CHRONIC LYMPHOCYTIC LEUKAEMIA
     Route: 065
     Dates: start: 20160323
  43. KIOVIG [Suspect]
     Active Substance: HUMAN IMMUNOGLOBULIN G
     Indication: IMMUNOGLOBULINS DECREASED
     Route: 065
  44. PANTOPRAZOL [Concomitant]
     Active Substance: PANTOPRAZOLE SODIUM
     Indication: PRODUCT USED FOR UNKNOWN INDICATION
     Dosage: UNK
     Route: 065
  45. CYCLOPHOSPHAMID [Suspect]
     Active Substance: CYCLOPHOSPHAMIDE
     Route: 065
     Dates: start: 20141118, end: 20150407

REACTIONS (51)
  - Nausea [Unknown]
  - Abdominal pain upper [Unknown]
  - Cytopenia [Unknown]
  - Blindness unilateral [Not Recovered/Not Resolved]
  - Gallbladder polyp [Unknown]
  - Hypersensitivity [Recovered/Resolved]
  - Liver function test increased [Not Recovered/Not Resolved]
  - Folliculitis [Unknown]
  - Mucosal disorder [Unknown]
  - Ill-defined disorder [Unknown]
  - Pyrexia [Recovered/Resolved]
  - Central nervous system lesion [Not Recovered/Not Resolved]
  - Pneumonia [Unknown]
  - Myelosuppression [Unknown]
  - Basal cell carcinoma [Not Recovered/Not Resolved]
  - Rectal tenesmus [Unknown]
  - Diarrhoea [Recovered/Resolved]
  - Cataract subcapsular [Unknown]
  - Abdominal pain [Unknown]
  - Dermatitis atopic [Unknown]
  - Toxoplasmosis [Recovered/Resolved with Sequelae]
  - Varicella zoster virus infection [Recovered/Resolved]
  - Large intestinal stenosis [Recovered/Resolved]
  - Respiratory failure [Unknown]
  - Colitis [Recovered/Resolved]
  - Retinitis viral [Recovered/Resolved]
  - Toxoplasmosis [Unknown]
  - Dizziness [Unknown]
  - Pain [Unknown]
  - Impulse-control disorder [Recovered/Resolved]
  - Epilepsy [Not Recovered/Not Resolved]
  - Blood pressure increased [Recovered/Resolved]
  - Fungal infection [Unknown]
  - Cough [Recovered/Resolved]
  - Weight decreased [Not Recovered/Not Resolved]
  - Febrile neutropenia [Unknown]
  - Hemiparesis [Unknown]
  - Drug hypersensitivity [Unknown]
  - Pruritus allergic [Unknown]
  - Blepharospasm [Recovered/Resolved]
  - Bacterial disease carrier [Unknown]
  - Drug-induced liver injury [Not Recovered/Not Resolved]
  - Syncope [Unknown]
  - Encephalitis [Unknown]
  - Necrotising retinitis [Unknown]
  - Neutropenia [Unknown]
  - Nephropathy toxic [Unknown]
  - Leukopenia [Unknown]
  - Varicella zoster virus infection [Recovered/Resolved]
  - Hemiparesis [Recovering/Resolving]
  - Gallbladder polyp [Unknown]

NARRATIVE: CASE EVENT DATE: 201503
